FAERS Safety Report 4523126-0 (Version None)
Quarter: 2004Q4

REPORT INFORMATION
  Report Type: 
  Country: None (occurrence: None)
  Receive Date: 20041210
  Receipt Date: 20041130
  Transmission Date: 20050328
  Serious: Yes (Life-Threatening, Hospitalization)
  Sender: FDA-Public Use
  Company Number: GB-JNJFOC-20041200657

PATIENT
  Age: 67 Year
  Sex: Female

DRUGS (7)
  1. DURAGESIC [Suspect]
     Indication: DRUG USE FOR UNKNOWN INDICATION
     Route: 062
  2. MORPHINE [Suspect]
     Indication: DRUG USE FOR UNKNOWN INDICATION
     Route: 042
  3. DOLASETRON [Suspect]
     Indication: DRUG USE FOR UNKNOWN INDICATION
     Route: 042
  4. PROPOFOL [Suspect]
     Indication: DRUG USE FOR UNKNOWN INDICATION
     Route: 042
  5. BETAHISTINE [Concomitant]
     Route: 065
  6. MESALAMINE [Concomitant]
     Route: 065
  7. DOTHIEPIN HYDROCHLORIDE [Concomitant]
     Route: 065

REACTIONS (1)
  - ANAPHYLACTIC REACTION [None]
